FAERS Safety Report 6219999-6 (Version None)
Quarter: 2009Q2

REPORT INFORMATION
  Report Type: 
  Country: None (occurrence: None)
  Receive Date: 20090609
  Receipt Date: 20090605
  Transmission Date: 20091009
  Serious: Yes (Other)
  Sender: FDA-Public Use
  Company Number: FR-BRISTOL-MYERS SQUIBB COMPANY-14651087

PATIENT
  Sex: Male

DRUGS (1)
  1. REYATAZ [Suspect]
     Dosage: 1 DOSAGE FORM=1 CAPSULE=200MG
     Dates: start: 20090605

REACTIONS (2)
  - OVERDOSE [None]
  - RENAL COLIC [None]
